FAERS Safety Report 11524945 (Version 1)
Quarter: 2015Q3

REPORT INFORMATION
  Report Type: Spontaneous
  Country: CN (occurrence: CN)
  Receive Date: 20150918
  Receipt Date: 20150918
  Transmission Date: 20151125
  Serious: Yes (Hospitalization)
  Sender: FDA-Public Use
  Company Number: CN-ASTRAZENECA-2015SE89123

PATIENT
  Age: 50 Year
  Sex: Female
  Weight: 67 kg

DRUGS (9)
  1. PREDNISONE. [Concomitant]
     Active Substance: PREDNISONE
     Route: 048
  2. MITOXANTRONE [Concomitant]
     Active Substance: MITOXANTRONE HYDROCHLORIDE
     Dosage: PULSE THERAPY 5 MONTHS BEFORE REPORTING
     Route: 065
  3. CARBAMAZEPINE. [Interacting]
     Active Substance: CARBAMAZEPINE
     Dosage: FROM 5 MONTHS BEFORE REPORTING, 0.05 G EVERY 8 HOURS
     Route: 065
  4. CARBAMAZEPINE. [Interacting]
     Active Substance: CARBAMAZEPINE
     Dosage: FROM 3 MONTHS BEFORE REPORTING, 0.05 G IN THE MORNING, 0.1 AFTERNOON, 0.05 EVENING
     Route: 065
  5. LORATADINE. [Concomitant]
     Active Substance: LORATADINE
     Route: 048
  6. ROSUVASTAIN [Suspect]
     Active Substance: ROSUVASTATIN
     Route: 048
  7. MITOXANTRONE [Concomitant]
     Active Substance: MITOXANTRONE HYDROCHLORIDE
     Dosage: PULSE THERAPY 1 MONTH BEFORE REPORTING
     Route: 065
  8. CEFIXIME. [Concomitant]
     Active Substance: CEFIXIME
     Indication: PYREXIA
     Dosage: 1 MONTH BEFORE REPORTING
     Route: 065
  9. JINHUAQINGGAN [Concomitant]
     Indication: PYREXIA
     Dosage: 1 MONTH BEFORE REPORTING
     Route: 048

REACTIONS (4)
  - Dermatitis exfoliative [Recovered/Resolved]
  - Drug interaction [Unknown]
  - Transaminases increased [Unknown]
  - Pruritus generalised [Recovered/Resolved]
